FAERS Safety Report 7369959-7 (Version None)
Quarter: 2011Q1

REPORT INFORMATION
  Report Type: 
  Country: None (occurrence: None)
  Receive Date: 20110323
  Receipt Date: 20110309
  Transmission Date: 20110831
  Serious: Yes (Hospitalization)
  Sender: FDA-Public Use
  Company Number: PHHY2011DE22317

PATIENT
  Age: 81 Year
  Sex: Female

DRUGS (2)
  1. RIVASTIGMINE [Suspect]
     Indication: DEMENTIA ALZHEIMER'S TYPE
     Dosage: 4.6 MG PER 24 HRS
     Route: 062
  2. VENLAFAXINE [Concomitant]
     Indication: DEMENTIA ALZHEIMER'S TYPE

REACTIONS (4)
  - ELEVATED MOOD [None]
  - MANIA [None]
  - INSOMNIA [None]
  - RESTLESSNESS [None]
